FAERS Safety Report 13426518 (Version 1)
Quarter: 2017Q2

REPORT INFORMATION
  Report Type: Report from Study
  Country: CZ (occurrence: CZ)
  Receive Date: 20170411
  Receipt Date: 20170411
  Transmission Date: 20170830
  Serious: Yes (Hospitalization)
  Sender: FDA-Public Use
  Company Number: CZ-TAKEDA-2017MPI001847

PATIENT
  Age: 71 Year
  Sex: Male

DRUGS (21)
  1. HYDROCHLOROTHIAZIDE. [Concomitant]
     Active Substance: HYDROCHLOROTHIAZIDE
     Indication: OEDEMA PERIPHERAL
     Dosage: 25 MG, BID
     Route: 048
     Dates: start: 20170214
  2. VOLTAREN [Concomitant]
     Active Substance: DICLOFENAC SODIUM
     Indication: MUSCULOSKELETAL CHEST PAIN
     Dosage: 50 MG, BID
     Route: 048
     Dates: start: 20161118
  3. HELICID                            /00661201/ [Concomitant]
     Indication: PEPTIC ULCER
     Dosage: 20 MG, QD
     Route: 048
     Dates: start: 20161121
  4. DEXAMETHASONE. [Suspect]
     Active Substance: DEXAMETHASONE
     Indication: PLASMA CELL MYELOMA
     Dosage: 20 MG, UNK
     Route: 048
     Dates: start: 20161121
  5. VOLTAREN [Concomitant]
     Active Substance: DICLOFENAC SODIUM
     Indication: BACK PAIN
  6. VELCADE [Suspect]
     Active Substance: BORTEZOMIB
     Indication: PLASMA CELL MYELOMA
     Dosage: 713 MG/M2, UNK
     Route: 058
     Dates: start: 20161121
  7. ACC LONG [Concomitant]
     Active Substance: ACETYLCYSTEINE
     Indication: BRONCHITIS
     Dosage: 600 MG, QD
     Route: 048
     Dates: start: 20170205
  8. TRAMAL [Concomitant]
     Active Substance: TRAMADOL
     Indication: MUSCULOSKELETAL CHEST PAIN
     Dosage: 150 MG, BID
     Route: 048
     Dates: start: 20161108
  9. HYPNOGEN [Concomitant]
     Active Substance: ZOLPIDEM\ZOLPIDEM TARTRATE
     Indication: INSOMNIA
     Dosage: 5 MG, UNK
     Route: 048
     Dates: start: 20160116
  10. BERODUAL [Concomitant]
     Active Substance: FENOTEROL HYDROBROMIDE\IPRATROPIUM BROMIDE
     Indication: BRONCHITIS
     Dosage: UNK, QD
     Route: 055
     Dates: start: 20170213
  11. ZINNAT                             /00454602/ [Concomitant]
     Active Substance: CEFUROXIME SODIUM
     Indication: BRONCHITIS
     Dosage: 250 MG, BID
     Route: 048
     Dates: start: 20170220
  12. ZOVIRAX [Concomitant]
     Active Substance: ACYCLOVIR
     Indication: HERPES ZOSTER
     Dosage: 400 MG, QD
     Route: 048
     Dates: start: 20161121
  13. CALTRATE [Concomitant]
     Active Substance: CALCIUM CARBONATE
     Indication: HYPOCALCAEMIA
     Dosage: UNK
     Route: 048
     Dates: start: 20161219
  14. IBRUTINIB [Suspect]
     Active Substance: IBRUTINIB
     Indication: PLASMA CELL MYELOMA
     Dosage: 840 MG, QD
     Route: 048
     Dates: start: 20161121
  15. AMOXI-CLAVULANICO [Concomitant]
     Active Substance: AMOXICILLIN\CLAVULANIC ACID
     Indication: BRONCHITIS
     Dosage: 625 MG, BID
     Route: 048
     Dates: start: 20170209, end: 20170215
  16. AMOXI-CLAVULANICO [Concomitant]
     Active Substance: AMOXICILLIN\CLAVULANIC ACID
     Indication: VIRAL INFECTION
     Dosage: 1 G, BID
     Route: 048
     Dates: start: 20170118, end: 20170128
  17. TRANSTEC [Concomitant]
     Active Substance: BUPRENORPHINE
     Indication: MUSCULOSKELETAL CHEST PAIN
     Dosage: 17.5 ?G, UNK
     Route: 065
     Dates: start: 20161128
  18. TRAMAL [Concomitant]
     Active Substance: TRAMADOL
     Indication: BACK PAIN
  19. ANOPYRIN [Concomitant]
     Active Substance: ASPIRIN
     Indication: THROMBOSIS PROPHYLAXIS
     Dosage: 100 MG, QD
     Route: 048
     Dates: start: 20160502
  20. IGAMPLIA [Concomitant]
     Indication: INFECTION PROPHYLAXIS
     Dosage: 800 MG, Q4WEEKS
     Route: 030
     Dates: start: 20170123
  21. TRANSTEC [Concomitant]
     Active Substance: BUPRENORPHINE
     Indication: BACK PAIN

REACTIONS (2)
  - Pneumocystis jirovecii pneumonia [Recovered/Resolved]
  - Bronchopulmonary aspergillosis [Recovered/Resolved]

NARRATIVE: CASE EVENT DATE: 20170224
